FAERS Safety Report 9897305 (Version 2)
Quarter: 2014Q3

REPORT INFORMATION
  Report Type: Spontaneous
  Country: US (occurrence: US)
  Receive Date: 20140214
  Receipt Date: 20140812
  Transmission Date: 20150326
  Serious: No
  Sender: FDA-Public Use
  Company Number: US-009507513-1402USA006682

PATIENT
  Sex: Female
  Weight: 151.8 kg

DRUGS (1)
  1. NUVARING [Suspect]
     Active Substance: ETHINYL ESTRADIOL\ETONOGESTREL
     Indication: CONTRACEPTION
     Dosage: 1 RING IN 21 DAYS, OUT FOR 7
     Route: 067

REACTIONS (20)
  - Neck pain [Unknown]
  - Lichen striatus [Unknown]
  - Narcolepsy [Unknown]
  - Migraine [Unknown]
  - Vulvovaginal discomfort [Unknown]
  - Hypersomnia [Unknown]
  - Dry eye [Unknown]
  - Oedema genital [Unknown]
  - Post-traumatic stress disorder [Unknown]
  - Back pain [Unknown]
  - Cognitive disorder [Unknown]
  - Adjustment disorder with mixed disturbance of emotion and conduct [Unknown]
  - Colitis [Unknown]
  - Patellofemoral pain syndrome [Unknown]
  - Colitis ulcerative [Unknown]
  - Deep vein thrombosis [Unknown]
  - Major depression [Unknown]
  - Sciatica [Unknown]
  - Irritable bowel syndrome [Unknown]
  - Astigmatism [Unknown]

NARRATIVE: CASE EVENT DATE: 20101129
